FAERS Safety Report 5848399-3 (Version None)
Quarter: 2008Q3

REPORT INFORMATION
  Report Type: 
  Country: None (occurrence: None)
  Receive Date: 20080815
  Receipt Date: 20080815
  Transmission Date: 20090109
  Serious: Yes (Hospitalization)
  Sender: FDA-Public Use
  Company Number: None

PATIENT
  Age: 64 Year
  Sex: Male
  Weight: 90 kg

DRUGS (2)
  1. LEVAQUIN [Suspect]
     Indication: RESPIRATORY DISORDER
     Dosage: 750 MG/DAY ONCE A DAY BUCCAL
     Route: 002
     Dates: start: 20080524, end: 20080530
  2. LEXOBRON [Concomitant]

REACTIONS (1)
  - TENDON RUPTURE [None]
